FAERS Safety Report 18521515 (Version 5)
Quarter: 2025Q3

REPORT INFORMATION
  Report Type: Spontaneous
  Country: JP (occurrence: JP)
  Receive Date: 20201119
  Receipt Date: 20250730
  Transmission Date: 20251021
  Serious: Yes (Death, Other)
  Sender: NOVARTIS
  Company Number: NVSJ2020JP011992

PATIENT
  Age: 76 Year
  Sex: Female

DRUGS (4)
  1. TAFINLAR [Suspect]
     Active Substance: DABRAFENIB MESYLATE
     Indication: Non-small cell lung cancer
     Route: 048
     Dates: start: 201910
  2. TAFINLAR [Suspect]
     Active Substance: DABRAFENIB MESYLATE
     Route: 048
  3. MEKINIST [Suspect]
     Active Substance: TRAMETINIB DIMETHYL SULFOXIDE
     Indication: Non-small cell lung cancer
     Route: 048
     Dates: start: 201910
  4. MEKINIST [Suspect]
     Active Substance: TRAMETINIB DIMETHYL SULFOXIDE
     Route: 048

REACTIONS (13)
  - Metastases to central nervous system [Fatal]
  - Malignant neoplasm progression [Fatal]
  - Non-small cell lung cancer [Fatal]
  - Metastases to bone [Fatal]
  - Cachexia [Fatal]
  - Decreased appetite [Fatal]
  - Septic shock [Recovering/Resolving]
  - Neutrophil count decreased [Recovered/Resolved]
  - Hyperkalaemia [Unknown]
  - Pyrexia [Recovered/Resolved]
  - Nausea [Recovering/Resolving]
  - Rash [Unknown]
  - Blood alkaline phosphatase increased [Unknown]
